FAERS Safety Report 7594720-8 (Version None)
Quarter: 2011Q3

REPORT INFORMATION
  Report Type: 
  Country: None (occurrence: None)
  Receive Date: 20110707
  Receipt Date: 20110628
  Transmission Date: 20111222
  Serious: Yes (Other)
  Sender: FDA-Public Use
  Company Number: SA-JNJFOC-20110700113

PATIENT
  Age: 26 Year
  Sex: Male

DRUGS (3)
  1. FLUANXOL DEPOT [Suspect]
     Indication: SCHIZOPHRENIA, PARANOID TYPE
     Route: 065
  2. RISPERIDONE [Suspect]
     Indication: SCHIZOPHRENIA, PARANOID TYPE
     Route: 065
  3. PROCYCLIDINE HYDROCHLORIDE 2MG TAB [Suspect]
     Indication: SCHIZOPHRENIA, PARANOID TYPE
     Route: 065

REACTIONS (3)
  - AGGRESSION [None]
  - IMPAIRED SELF-CARE [None]
  - FAHR'S DISEASE [None]
